FAERS Safety Report 7436690-9 (Version None)
Quarter: 2011Q2

REPORT INFORMATION
  Report Type: 
  Country: None (occurrence: None)
  Receive Date: 20110418
  Receipt Date: 20110407
  Transmission Date: 20111010
  Serious: Yes (Hospitalization, Disabling)
  Sender: FDA-Public Use
  Company Number: TCI2010A06502

PATIENT
  Age: 85 Year
  Sex: Male

DRUGS (10)
  1. EPADEL (ETHYL ICOSAPENTATE) [Concomitant]
  2. ZETIA [Concomitant]
  3. CONIEL (BENIDIPINE HYDROCHLORIDE) [Concomitant]
  4. SPIROPENT (CLENBUTEROL HYDROCHLORIDE) [Concomitant]
  5. ACTOS [Suspect]
     Indication: DIABETES MELLITUS
     Dosage: 15 MG (15 MG,1 IN 1 D) PER ORAL
     Route: 048
     Dates: end: 20101110
  6. PLETAL [Concomitant]
  7. UNINORM (BENZBROMARONE) [Concomitant]
  8. MYSLEE (ZOLPIDEM TARTRATE) [Concomitant]
  9. OPALMON (LIMAPROST) [Concomitant]
  10. UFT [Concomitant]

REACTIONS (14)
  - GASTRITIS [None]
  - HEPATIC NEOPLASM [None]
  - CONTUSION [None]
  - ANAEMIA [None]
  - HIATUS HERNIA [None]
  - BLOOD CREATINE PHOSPHOKINASE INCREASED [None]
  - FALL [None]
  - INAPPROPRIATE ANTIDIURETIC HORMONE SECRETION [None]
  - OEDEMA PERIPHERAL [None]
  - GASTROOESOPHAGEAL REFLUX DISEASE [None]
  - MONOCLONAL GAMMOPATHY [None]
  - ATELECTASIS [None]
  - MUSCLE DISORDER [None]
  - LIPOMA [None]
